FAERS Safety Report 9819617 (Version 1)
Quarter: 2014Q1

REPORT INFORMATION
  Report Type: Spontaneous
  Country: IT (occurrence: IT)
  Receive Date: 20140115
  Receipt Date: 20140115
  Transmission Date: 20141002
  Serious: Yes (Hospitalization)
  Sender: FDA-Public Use
  Company Number: IT-MYLANLABS-113AS20140015

PATIENT
  Age: 64 Year
  Sex: Female

DRUGS (1)
  1. CIPROFLOXACIN [Suspect]
     Indication: URINARY TRACT INFECTION
     Dosage: 500 MG DAILY
     Route: 048
     Dates: start: 20130321, end: 20130325

REACTIONS (2)
  - Rash [Recovered/Resolved]
  - Pulmonary eosinophilia [Recovered/Resolved]
